FAERS Safety Report 6084093-4 (Version None)
Quarter: 2009Q1

REPORT INFORMATION
  Report Type: 
  Country: None (occurrence: None)
  Receive Date: 20090217
  Receipt Date: 20090217
  Transmission Date: 20090719
  Serious: Yes (Hospitalization)
  Sender: FDA-Public Use
  Company Number: None

PATIENT
  Age: 42 Year
  Sex: Male
  Weight: 91 kg

DRUGS (11)
  1. ASPIRIN [Suspect]
     Indication: PAIN
     Dates: start: 20081110, end: 20081110
  2. ASPIRIN [Suspect]
     Indication: PYREXIA
     Dates: start: 20081110, end: 20081110
  3. ALKA-SELTZER [Suspect]
  4. MORPHINE [Concomitant]
  5. PERCOCET [Concomitant]
  6. LEVOFLOXACIN [Concomitant]
  7. METRONIDAZOLE HCL [Concomitant]
  8. ENOXAPARIN SODIUM [Concomitant]
  9. ZOFRAN [Concomitant]
  10. NEXIUM [Concomitant]
  11. PROMETHAZINE [Concomitant]

REACTIONS (2)
  - FLUSHING [None]
  - THROAT TIGHTNESS [None]
